FAERS Safety Report 8470226-9 (Version None)
Quarter: 2012Q2

REPORT INFORMATION
  Report Type: 
  Country: None (occurrence: None)
  Receive Date: 20120621
  Receipt Date: 20120621
  Transmission Date: 20120825
  Serious: Yes (Other)
  Sender: FDA-Public Use
  Company Number: None

PATIENT
  Age: 60 Year
  Sex: Female
  Weight: 75.7507 kg

DRUGS (1)
  1. DAPSONE [Suspect]
     Indication: IMMUNE SYSTEM DISORDER
     Dosage: ONE PILL A DAY NIGHT MED
     Dates: start: 20120223, end: 20120317

REACTIONS (12)
  - URTICARIA [None]
  - OCULAR ICTERUS [None]
  - SKIN DISCOLOURATION [None]
  - PYREXIA [None]
  - PAIN IN EXTREMITY [None]
  - DYSSTASIA [None]
  - VISUAL IMPAIRMENT [None]
  - VOMITING [None]
  - NAIL DISCOLOURATION [None]
  - CYSTITIS [None]
  - DECREASED APPETITE [None]
  - RENAL FAILURE [None]
